FAERS Safety Report 24753782 (Version 1)
Quarter: 2024Q4

REPORT INFORMATION
  Report Type: Report from Study
  Country: US (occurrence: US)
  Receive Date: 20241219
  Receipt Date: 20241219
  Transmission Date: 20250115
  Serious: Yes (Other)
  Sender: ALEXION PHARMACEUTICALS
  Company Number: US-AstraZeneca-CH-00767228A

PATIENT

DRUGS (8)
  1. CALQUENCE [Suspect]
     Active Substance: ACALABRUTINIB
     Indication: Non-Hodgkin^s lymphoma
     Dosage: 100 MILLIGRAM, BID
  2. CALQUENCE [Suspect]
     Active Substance: ACALABRUTINIB
     Dosage: 100 MILLIGRAM, BID
     Route: 048
  3. CALQUENCE [Suspect]
     Active Substance: ACALABRUTINIB
     Dosage: 100 MILLIGRAM, BID
  4. CALQUENCE [Suspect]
     Active Substance: ACALABRUTINIB
     Dosage: 100 MILLIGRAM, BID
     Route: 048
  5. LASIX [Concomitant]
     Active Substance: FUROSEMIDE
     Route: 065
  6. LASIX [Concomitant]
     Active Substance: FUROSEMIDE
     Route: 065
  7. PEPCID [Concomitant]
     Active Substance: FAMOTIDINE
     Route: 065
  8. PEPCID [Concomitant]
     Active Substance: FAMOTIDINE
     Route: 065

REACTIONS (5)
  - Mitral valve incompetence [Unknown]
  - Peripheral swelling [Unknown]
  - Dry skin [Unknown]
  - Gastrooesophageal reflux disease [Unknown]
  - Haemoglobin decreased [Unknown]
